FAERS Safety Report 7538437-4 (Version None)
Quarter: 2011Q2

REPORT INFORMATION
  Report Type: 
  Country: None (occurrence: None)
  Receive Date: 20110609
  Receipt Date: 20110601
  Transmission Date: 20111010
  Serious: Yes (Death, Hospitalization)
  Sender: FDA-Public Use
  Company Number: MW-ABBOTT-11P-100-0702394-00

PATIENT
  Age: 52 Year
  Sex: Male

DRUGS (3)
  1. ISENTRESS [Concomitant]
     Indication: HIV INFECTION
     Route: 048
     Dates: start: 20101109, end: 20101124
  2. LOPINAVIR/RITONAVIR [Suspect]
     Indication: HIV INFECTION
     Route: 048
     Dates: start: 20101109, end: 20101224
  3. LOPINAVIR/RITONAVIR [Suspect]
     Dates: start: 20101109, end: 20101224

REACTIONS (1)
  - PNEUMONIA BACTERIAL [None]
